FAERS Safety Report 20705591 (Version 1)
Quarter: 2022Q2

REPORT INFORMATION
  Report Type: Spontaneous
  Country: US (occurrence: None)
  Receive Date: 20220412
  Receipt Date: 20220412
  Transmission Date: 20220721
  Serious: Yes (Hospitalization)
  Sender: FDA-Public Use
  Company Number: None

PATIENT
  Age: 50 Year
  Sex: Male
  Weight: 58.9 kg

DRUGS (1)
  1. EVUSHELD [Suspect]
     Active Substance: CILGAVIMAB\TIXAGEVIMAB

REACTIONS (11)
  - Dizziness [None]
  - Dizziness [None]
  - Headache [None]
  - Chills [None]
  - Myalgia [None]
  - Diarrhoea [None]
  - Vomiting [None]
  - Metabolic acidosis [None]
  - Acute kidney injury [None]
  - Hypotension [None]
  - Infusion related reaction [None]

NARRATIVE: CASE EVENT DATE: 20220313
